FAERS Safety Report 4608014-3 (Version None)
Quarter: 2005Q2

REPORT INFORMATION
  Report Type: 
  Country: None (occurrence: None)
  Receive Date: 20050303
  Receipt Date: 20041217
  Transmission Date: 20051028
  Serious: No
  Sender: FDA-Public Use
  Company Number: 210898

PATIENT
  Age: 17 Year
  Sex: Female

DRUGS (3)
  1. XOLAIR [Suspect]
     Indication: ASTHMA
     Dosage: 300 MG, Q2W, SUBCUTANEOUS
     Route: 058
     Dates: start: 20041101
  2. BIRTH CONTROL PILLS (ORAL CONTRACEPTIVE NOS) [Concomitant]
  3. INHALER (GENERIC COMPONENTS) [Concomitant]

REACTIONS (2)
  - ALOPECIA [None]
  - ARTHRALGIA [None]
